FAERS Safety Report 11622627 (Version 1)
Quarter: 2015Q4

REPORT INFORMATION
  Report Type: Spontaneous
  Country: US (occurrence: US)
  Receive Date: 20151013
  Receipt Date: 20151013
  Transmission Date: 20160304
  Serious: No
  Sender: FDA-Public Use
  Company Number: US-JNJFOC-20150109867

PATIENT
  Age: 24 Month
  Sex: Male
  Weight: 12.25 kg

DRUGS (1)
  1. TYLENOL EXTRA STRENGTH [Suspect]
     Active Substance: ACETAMINOPHEN
     Indication: ACCIDENTAL EXPOSURE TO PRODUCT
     Dosage: 3.5 TABS
     Route: 048
     Dates: start: 20140221, end: 20140221

REACTIONS (2)
  - Product packaging issue [Unknown]
  - Accidental exposure to product [Unknown]
